FAERS Safety Report 6336324-0 (Version None)
Quarter: 2009Q3

REPORT INFORMATION
  Report Type: 
  Country: None (occurrence: None)
  Receive Date: 20090901
  Receipt Date: 20090819
  Transmission Date: 20100115
  Serious: Yes (Death)
  Sender: FDA-Public Use
  Company Number: US-PFIZER INC-2009244170

PATIENT
  Sex: Female
  Weight: 57.596 kg

DRUGS (1)
  1. REVATIO [Suspect]
     Indication: PULMONARY HYPERTENSION
     Dosage: 20 MG, 3X/DAY
     Route: 048
     Dates: start: 20080923, end: 20090530

REACTIONS (2)
  - CHRONIC RIGHT VENTRICULAR FAILURE [None]
  - RESPIRATORY FAILURE [None]
